FAERS Safety Report 25417298 (Version 1)
Quarter: 2025Q2

REPORT INFORMATION
  Report Type: Spontaneous
  Country: CH (occurrence: CH)
  Receive Date: 20250610
  Receipt Date: 20250610
  Transmission Date: 20250716
  Serious: Yes (Other)
  Sender: STRIDES
  Company Number: CH-STRIDES ARCOLAB LIMITED-2025SP007085

PATIENT
  Age: 11 Year
  Sex: Female

DRUGS (2)
  1. LEVETIRACETAM [Suspect]
     Active Substance: LEVETIRACETAM
     Indication: Hemiplegic migraine
     Route: 065
  2. METHYLPREDNISOLONE [Suspect]
     Active Substance: METHYLPREDNISOLONE
     Indication: Hemiplegic migraine
     Route: 065

REACTIONS (4)
  - Partial seizures [Unknown]
  - Hemiplegia [Unknown]
  - Drug ineffective for unapproved indication [Unknown]
  - Aphasia [Unknown]
